FAERS Safety Report 14596147 (Version 3)
Quarter: 2018Q4

REPORT INFORMATION
  Report Type: Spontaneous
  Country: BE (occurrence: BE)
  Receive Date: 20180303
  Receipt Date: 20181218
  Transmission Date: 20190204
  Serious: Yes (Other)
  Sender: FDA-Public Use
  Company Number: BE-AUROBINDO-AUR-APL-2018-010484

PATIENT
  Sex: Male

DRUGS (1)
  1. MOXIFLOXACIN AB 400 MG FILM COATED TABLET [Suspect]
     Active Substance: MOXIFLOXACIN HYDROCHLORIDE
     Indication: ERYSIPELAS
     Dosage: 400 MILLIGRAM DAILY; FOR 5-10 DAYS
     Route: 048

REACTIONS (2)
  - Iris transillumination defect [Unknown]
  - Iris hypopigmentation [Unknown]
